FAERS Safety Report 9174691 (Version 2)
Quarter: 2013Q2

REPORT INFORMATION
  Report Type: Spontaneous
  Country: FR (occurrence: None)
  Receive Date: 20130318
  Receipt Date: 20130529
  Transmission Date: 20140414
  Serious: Yes (Hospitalization)
  Sender: FDA-Public Use
  Company Number: SYM-2013-01644

PATIENT
  Age: 88 Year
  Sex: Male

DRUGS (18)
  1. FLAGYL [Suspect]
     Indication: PRODUCT USED FOR UNKNOWN INDICATION
     Dosage: 3 TIMES A DAY, (NOT OTHERWISE SPECIFIED)
     Route: 042
     Dates: start: 20130118
  2. ANTINEOPLASTIC AGENTS (ANTINEOPLASTIC AGENTS)(CAOSULE) [Suspect]
     Indication: PRODUCT USED FOR UNKNOWN INDICATION
     Route: 048
     Dates: start: 20130108, end: 20130125
  3. AUGMENTIN [Suspect]
     Indication: PRODUCT USED FOR UNKNOWN INDICATION
     Dosage: 3 TIMES A DAY, (NOT OTHERWISE SPECIFIED)
     Route: 042
     Dates: start: 20130118
  4. PERFALGAN [Concomitant]
  5. PRIMPERAN [Concomitant]
  6. ROCEPHINE [Concomitant]
  7. INSULIN [Concomitant]
  8. CALCIPARINE [Concomitant]
  9. GENTAMICIN [Concomitant]
  10. TRIMEBUTINE MALEATE [Concomitant]
  11. PHLOROGLUCINOL [Concomitant]
  12. INEXIUM [Concomitant]
  13. COAPROVEL [Concomitant]
  14. VERAPAMIL [Concomitant]
  15. KARDEGIC [Concomitant]
  16. CRESTOR [Concomitant]
  17. OMEPRAZOLE [Concomitant]
  18. DEBRIDAT [Suspect]
     Route: 042

REACTIONS (11)
  - Hepatocellular injury [None]
  - Abdominal pain [None]
  - Constipation [None]
  - Vomiting [None]
  - Abdominal sepsis [None]
  - Biliary cyst [None]
  - Cholestasis [None]
  - Asthenia [None]
  - Rectal haemorrhage [None]
  - Red blood cell count decreased [None]
  - Haemodynamic instability [None]
